FAERS Safety Report 15781681 (Version 2)
Quarter: 2019Q1

REPORT INFORMATION
  Report Type: Spontaneous
  Country: US (occurrence: US)
  Receive Date: 20190102
  Receipt Date: 20190204
  Transmission Date: 20190417
  Serious: No
  Sender: FDA-Public Use
  Company Number: US-PFIZER INC-2018533823

PATIENT
  Age: 59 Year
  Sex: Female
  Weight: 54.43 kg

DRUGS (3)
  1. ADVIL PM [Suspect]
     Active Substance: DIPHENHYDRAMINE CITRATE\IBUPROFEN
     Indication: HEADACHE
     Dosage: 2 DF, WEEKLY (TWO LIQUIGELS AT NIGHT ONCE PER WEEK ON AVERAGE)
     Route: 048
     Dates: start: 201810
  2. ADVIL PM [Suspect]
     Active Substance: DIPHENHYDRAMINE CITRATE\IBUPROFEN
     Indication: PAIN
  3. ADVIL PM [Suspect]
     Active Substance: DIPHENHYDRAMINE CITRATE\IBUPROFEN
     Indication: MYALGIA

REACTIONS (4)
  - Foreign body in respiratory tract [Not Recovered/Not Resolved]
  - Product use complaint [Not Recovered/Not Resolved]
  - Feeling abnormal [Unknown]
  - Product size issue [Not Recovered/Not Resolved]

NARRATIVE: CASE EVENT DATE: 201810
